FAERS Safety Report 8121225-8 (Version None)
Quarter: 2012Q1

REPORT INFORMATION
  Report Type: 
  Country: None (occurrence: None)
  Receive Date: 20120203
  Receipt Date: 20120124
  Transmission Date: 20120608
  Serious: Yes (Congenital Anomaly, Other)
  Sender: FDA-Public Use
  Company Number: DKLU1076152

PATIENT
  Sex: Female

DRUGS (2)
  1. ONFI [Suspect]
     Indication: MATERNAL EXPOSURE TIMING UNSPECIFIED
     Dosage: TRANSPLACENTAL
     Route: 064
     Dates: start: 20110124, end: 20110221
  2. ZONISAMIDE [Suspect]
     Indication: MATERNAL EXPOSURE TIMING UNSPECIFIED
     Dosage: TRANSPLACENTAL
     Route: 064
     Dates: start: 20100726, end: 20110101

REACTIONS (2)
  - MATERNAL DRUGS AFFECTING FOETUS [None]
  - POLYDACTYLY [None]
